FAERS Safety Report 5074812-8 (Version None)
Quarter: 2006Q3

REPORT INFORMATION
  Report Type: 
  Country: None (occurrence: None)
  Receive Date: 20060809
  Receipt Date: 20060807
  Transmission Date: 20061208
  Serious: Yes (Other)
  Sender: FDA-Public Use
  Company Number: JP-BAYER-200610947BYL

PATIENT

DRUGS (1)
  1. 8-HOUR BAYER [Suspect]
     Route: 048

REACTIONS (1)
  - THROMBOCYTOPENIA [None]
